FAERS Safety Report 15685424 (Version 2)
Quarter: 2018Q4

REPORT INFORMATION
  Report Type: Report from Study
  Country: CO (occurrence: CO)
  Receive Date: 20181204
  Receipt Date: 20181221
  Transmission Date: 20190205
  Serious: Yes (Hospitalization)
  Sender: FDA-Public Use
  Company Number: PHHY2018CO053384

PATIENT
  Age: 54 Year
  Sex: Female
  Weight: 52 kg

DRUGS (1)
  1. AFINITOR [Suspect]
     Active Substance: EVEROLIMUS
     Indication: BREAST CANCER
     Dosage: 10 MG, QD
     Route: 048
     Dates: start: 201807

REACTIONS (12)
  - Stomatitis [Unknown]
  - Pain [Unknown]
  - Hypoaesthesia [Unknown]
  - Oral mucosal exfoliation [Unknown]
  - Pain in extremity [Unknown]
  - Anorectal disorder [Unknown]
  - Femur fracture [Unknown]
  - Peripheral swelling [Unknown]
  - Dyschezia [Unknown]
  - Oropharyngeal plaque [Unknown]
  - Pyrexia [Unknown]
  - Skin plaque [Unknown]

NARRATIVE: CASE EVENT DATE: 20181124
